FAERS Safety Report 12692299 (Version 2)
Quarter: 2016Q4

REPORT INFORMATION
  Report Type: Spontaneous
  Country: US (occurrence: US)
  Receive Date: 20160828
  Receipt Date: 20161018
  Transmission Date: 20170207
  Serious: Yes (Hospitalization)
  Sender: FDA-Public Use
  Company Number: US-ASTRAZENECA-2016SE85820

PATIENT
  Age: 77 Year
  Sex: Male

DRUGS (15)
  1. ENADRYL [Concomitant]
     Dosage: 25 MG EVERY 6 HOURS AS NEEDED
     Route: 048
  2. BRILINTA [Suspect]
     Active Substance: TICAGRELOR
     Indication: ACUTE CORONARY SYNDROME
     Route: 048
     Dates: end: 201609
  3. LISINOPRIL. [Suspect]
     Active Substance: LISINOPRIL
     Route: 048
     Dates: start: 20151112, end: 20160927
  4. LISINOPRIL. [Suspect]
     Active Substance: LISINOPRIL
     Route: 048
     Dates: start: 20160906
  5. ASPIRIN. [Concomitant]
     Active Substance: ASPIRIN
     Route: 048
     Dates: start: 20151217
  6. VITAMIN D3 [Concomitant]
     Active Substance: CHOLECALCIFEROL
     Route: 048
  7. GLUCOSAMINE HCL/CHONDRO SU A [Concomitant]
     Route: 048
  8. MULTIVITAMIN [Concomitant]
     Active Substance: VITAMINS
     Route: 048
  9. COENZYME Q10 [Concomitant]
     Active Substance: UBIDECARENONE
     Route: 048
  10. MAGNESIUM OXIDE. [Concomitant]
     Active Substance: MAGNESIUM OXIDE
     Route: 048
  11. GLUCOPHAGE [Concomitant]
     Active Substance: METFORMIN HYDROCHLORIDE
     Route: 048
  12. TYLENOL [Concomitant]
     Active Substance: ACETAMINOPHEN
  13. NITROSTAT [Concomitant]
     Active Substance: NITROGLYCERIN
     Indication: CHEST PAIN
     Dosage: DISSOLVE 1 TABLET SUBLINGUALLY EVERY FIVE MINUTES AS NEEDED
     Route: 060
     Dates: start: 20160718
  14. MEVACOR [Concomitant]
     Active Substance: LOVASTATIN
     Route: 048
     Dates: start: 20151015
  15. TENORMIN [Concomitant]
     Active Substance: ATENOLOL
     Route: 048
     Dates: start: 20160921

REACTIONS (3)
  - Intentional product misuse [Unknown]
  - Visual acuity reduced [Unknown]
  - Aortic stenosis [Unknown]
